FAERS Safety Report 8616687-3 (Version None)
Quarter: 2012Q3

REPORT INFORMATION
  Report Type: 
  Country: None (occurrence: None)
  Receive Date: 20120823
  Receipt Date: 20120820
  Transmission Date: 20120928
  Serious: Yes (Other)
  Sender: FDA-Public Use
  Company Number: US-PFIZER INC-2012204207

PATIENT
  Age: 26 Year
  Sex: Female
  Weight: 58.957 kg

DRUGS (1)
  1. DILANTIN [Suspect]
     Indication: EPILEPSY
     Dosage: UNK
     Route: 048
     Dates: start: 19870101, end: 19870101

REACTIONS (1)
  - ABORTION SPONTANEOUS [None]
